FAERS Safety Report 13178764 (Version 1)
Quarter: 2017Q1

REPORT INFORMATION
  Report Type: Spontaneous
  Country: US (occurrence: US)
  Receive Date: 20170202
  Receipt Date: 20170202
  Transmission Date: 20170428
  Serious: Yes (Death, Hospitalization, Other)
  Sender: FDA-Public Use
  Company Number: US-ASTELLAS-2016US036226

PATIENT
  Sex: Male

DRUGS (1)
  1. XTANDI [Suspect]
     Active Substance: ENZALUTAMIDE
     Indication: PRODUCT USED FOR UNKNOWN INDICATION
     Dosage: UNK, UNKNOWN FREQ.
     Route: 065
     Dates: end: 201611

REACTIONS (5)
  - Cerebrovascular accident [Unknown]
  - Hypoaesthesia [Unknown]
  - Malignant neoplasm progression [Fatal]
  - Incorrect product storage [Unknown]
  - Abasia [Unknown]

NARRATIVE: CASE EVENT DATE: 201611
